FAERS Safety Report 9033549 (Version 1)
Quarter: 2013Q1

REPORT INFORMATION
  Report Type: Report from Study
  Country: SG (occurrence: SG)
  Receive Date: 20130128
  Receipt Date: 20130128
  Transmission Date: 20140127
  Serious: Yes (Hospitalization)
  Sender: FDA-Public Use
  Company Number: SG-BAYER-2013-008499

PATIENT
  Sex: 0

DRUGS (8)
  1. ASPIRIN [Suspect]
     Indication: NEOPLASM MALIGNANT
  2. PREDNISOLONE [Suspect]
     Indication: NEOPLASM MALIGNANT
  3. AMOXICILLINE [Suspect]
     Dosage: UNK
  4. AMOXICILLINE + CLAVULANIC ACID [Suspect]
     Dosage: UNK
  5. TRIMETHOPRIM-SULFAMETHOXAZOLE [Suspect]
     Dosage: UNK
  6. OMEPRAZOLE [Concomitant]
     Dosage: UNK
  7. CALCIUM CARBONATE [Concomitant]
     Dosage: UNK
  8. MAGNESIUM TRISILICATE [Concomitant]
     Dosage: UNK

REACTIONS (5)
  - Diarrhoea [None]
  - Nausea [None]
  - Abdominal distension [None]
  - Flatulence [None]
  - Haemorrhoids [None]
